FAERS Safety Report 4919116-6 (Version None)
Quarter: 2006Q1

REPORT INFORMATION
  Report Type: 
  Country: None (occurrence: None)
  Receive Date: 20060216
  Receipt Date: 20060210
  Transmission Date: 20060701
  Serious: Yes (Death)
  Sender: FDA-Public Use
  Company Number: 163-20785-05120525

PATIENT
  Age: 87 Year
  Sex: Male

DRUGS (1)
  1. THALOMID [Suspect]
     Indication: MYELODYSPLASTIC SYNDROME
     Dosage: 100 MG, DAILY, ORAL
     Route: 048
     Dates: start: 20040226, end: 20041118

REACTIONS (1)
  - ACUTE RESPIRATORY FAILURE [None]
